FAERS Safety Report 18310573 (Version 2)
Quarter: 2020Q4

REPORT INFORMATION
  Report Type: Spontaneous
  Country: CN (occurrence: CN)
  Receive Date: 20200925
  Receipt Date: 20201003
  Transmission Date: 20210113
  Serious: Yes (Hospitalization)
  Sender: FDA-Public Use
  Company Number: CN-SA-2020SA258732

PATIENT

DRUGS (10)
  1. DANSHEN COMBO [Concomitant]
     Dosage: 10 DF, TID
     Dates: start: 2014
  2. HYDROCHLOROTHIAZIDE. [Concomitant]
     Active Substance: HYDROCHLOROTHIAZIDE
     Indication: HYPERTENSION
     Dosage: 12.5 MG, QD
     Dates: start: 2015, end: 2016
  3. APROVEL [Suspect]
     Active Substance: IRBESARTAN
     Indication: HYPERTENSION
     Dosage: 1 DF, QD
     Dates: start: 2015, end: 201909
  4. APROVEL [Suspect]
     Active Substance: IRBESARTAN
     Dosage: 1 DF, QD, OTHER MANUFACTURER
     Dates: start: 201909, end: 202009
  5. APROVEL [Suspect]
     Active Substance: IRBESARTAN
     Dosage: 0.5 DF, QD
     Dates: start: 202009
  6. DANSHEN COMBO [Concomitant]
     Dosage: 7 DF, TID
  7. DIAZEPAM. [Concomitant]
     Active Substance: DIAZEPAM
     Indication: INSOMNIA
  8. CAPTOPRIL. [Concomitant]
     Active Substance: CAPTOPRIL
     Indication: BLOOD PRESSURE ABNORMAL
     Dosage: 1/3 OR 1/2 AS NECESSARY
  9. ISOSORBIDE DINITRATE. [Concomitant]
     Active Substance: ISOSORBIDE DINITRATE
     Indication: INSOMNIA
  10. APROVEL [Suspect]
     Active Substance: IRBESARTAN
     Dosage: 1 DF, QD
     Dates: start: 202009

REACTIONS (7)
  - Rash [Recovered/Resolved]
  - Nocturia [Recovered/Resolved]
  - Rash pruritic [Recovering/Resolving]
  - Intentional product misuse [Unknown]
  - Urine sodium decreased [Recovered/Resolved]
  - Sleep disorder due to general medical condition, insomnia type [Recovering/Resolving]
  - Urine potassium decreased [Recovered/Resolved]

NARRATIVE: CASE EVENT DATE: 2016
